FAERS Safety Report 5256886-4 (Version None)
Quarter: 2007Q1

REPORT INFORMATION
  Report Type: 
  Country: None (occurrence: None)
  Receive Date: 20070306
  Receipt Date: 20070228
  Transmission Date: 20070707
  Serious: Yes (Hospitalization)
  Sender: FDA-Public Use
  Company Number: NZ-MERCK-0701NZL00016

PATIENT
  Age: 68 Year
  Sex: Female

DRUGS (4)
  1. FOSAMAX [Suspect]
     Indication: OSTEOPOROSIS
     Route: 048
     Dates: start: 20060101
  2. CARBAMAZEPINE [Concomitant]
     Indication: EPILEPSY
     Route: 065
  3. CALCIUM (UNSPECIFIED) [Concomitant]
     Route: 065
  4. VITAMINS (UNSPECIFIED) [Concomitant]
     Route: 065

REACTIONS (6)
  - CHEST PAIN [None]
  - CHRONIC FATIGUE SYNDROME [None]
  - DYSPEPSIA [None]
  - GASTRITIS [None]
  - HYPERTENSION [None]
  - WEIGHT DECREASED [None]
